FAERS Safety Report 15592493 (Version 1)
Quarter: 2018Q4

REPORT INFORMATION
  Report Type: Spontaneous
  Country: JP (occurrence: JP)
  Receive Date: 20181106
  Receipt Date: 20181106
  Transmission Date: 20190205
  Serious: Yes (Other)
  Sender: FDA-Public Use
  Company Number: JP-009507513-1810JPN003303J

PATIENT
  Sex: Male

DRUGS (4)
  1. EPADEL [Suspect]
     Active Substance: ICOSAPENT
     Dosage: UNK
     Route: 048
     Dates: start: 2018, end: 201810
  2. ZETIA [Suspect]
     Active Substance: EZETIMIBE
     Dosage: UNK
     Route: 048
     Dates: start: 20180831, end: 201810
  3. ZETIA [Suspect]
     Active Substance: EZETIMIBE
     Dosage: UNK
     Route: 048
     Dates: start: 201810
  4. ZETIA [Suspect]
     Active Substance: EZETIMIBE
     Dosage: UNK
     Route: 048
     Dates: start: 2011

REACTIONS (10)
  - Insomnia [Unknown]
  - Insomnia [Recovering/Resolving]
  - Cerebral haemorrhage [Unknown]
  - Nocturia [Recovering/Resolving]
  - Nocturia [Unknown]
  - Insomnia [Unknown]
  - Nocturia [Unknown]
  - Aneurysm [Unknown]
  - Dizziness [Unknown]
  - Dyspnoea [Unknown]

NARRATIVE: CASE EVENT DATE: 2018
